FAERS Safety Report 19111527 (Version 1)
Quarter: 2021Q2

REPORT INFORMATION
  Report Type: Spontaneous
  Country: US (occurrence: US)
  Receive Date: 20210408
  Receipt Date: 20210408
  Transmission Date: 20210717
  Serious: Yes (Disabling)
  Sender: FDA-Public Use
  Company Number: None

PATIENT
  Age: 21 Year
  Sex: Male
  Weight: 83.25 kg

DRUGS (1)
  1. CIPROFLOXACIN. [Suspect]
     Active Substance: CIPROFLOXACIN
     Indication: EPIDIDYMITIS

REACTIONS (5)
  - Arthropathy [None]
  - Vitreous floaters [None]
  - Muscle twitching [None]
  - Hypoaesthesia [None]
  - Affective disorder [None]

NARRATIVE: CASE EVENT DATE: 20140401
